FAERS Safety Report 7898107-X (Version None)
Quarter: 2011Q4

REPORT INFORMATION
  Report Type: 
  Country: None (occurrence: None)
  Receive Date: 20111103
  Receipt Date: 20111020
  Transmission Date: 20120403
  Serious: Yes (Other)
  Sender: FDA-Public Use
  Company Number: CL-353-2011

PATIENT
  Age: 38 Year
  Sex: Female

DRUGS (2)
  1. MALARONE [Suspect]
     Dosage: ORAL
     Route: 048
     Dates: start: 20100917, end: 20111002
  2. CIPROFLOXACIN [Suspect]

REACTIONS (2)
  - DRUG INTERACTION [None]
  - DERMATITIS ACNEIFORM [None]
